FAERS Safety Report 18308359 (Version 3)
Quarter: 2020Q4

REPORT INFORMATION
  Report Type: Spontaneous
  Country: BE (occurrence: BE)
  Receive Date: 20200924
  Receipt Date: 20201013
  Transmission Date: 20210113
  Serious: Yes (Disabling, Other)
  Sender: FDA-Public Use
  Company Number: BE-PFIZER INC-2020366228

PATIENT
  Age: 27 Year
  Sex: Male

DRUGS (5)
  1. MEDROL [Suspect]
     Active Substance: METHYLPREDNISOLONE
     Indication: PULMONARY SARCOIDOSIS
     Dosage: 32 MG, DAILY
     Dates: start: 201502, end: 2015
  2. MEDROL [Suspect]
     Active Substance: METHYLPREDNISOLONE
     Dosage: 24 MG, 1X/DAY
     Dates: start: 2015, end: 2015
  3. MEDROL [Suspect]
     Active Substance: METHYLPREDNISOLONE
     Dosage: 16 MG, DAILY
     Dates: start: 2015, end: 2015
  4. MEDROL [Suspect]
     Active Substance: METHYLPREDNISOLONE
     Dosage: 4 MG, DAILY
     Dates: start: 2015
  5. DOLZAM [Concomitant]
     Active Substance: TRAMADOL HYDROCHLORIDE
     Indication: PULMONARY SARCOIDOSIS
     Dosage: UNK
     Dates: start: 201502

REACTIONS (29)
  - Muscle fatigue [Not Recovered/Not Resolved]
  - Myopathy [Not Recovered/Not Resolved]
  - Depression [Not Recovered/Not Resolved]
  - Complex regional pain syndrome [Not Recovered/Not Resolved]
  - Myalgia [Not Recovered/Not Resolved]
  - Fatigue [Not Recovered/Not Resolved]
  - Action tremor [Not Recovered/Not Resolved]
  - Leukopenia [Not Recovered/Not Resolved]
  - Arthritis [Not Recovered/Not Resolved]
  - Weight decreased [Unknown]
  - Blindness [Unknown]
  - Eye haemorrhage [Unknown]
  - Presyncope [Not Recovered/Not Resolved]
  - Urine output increased [Not Recovered/Not Resolved]
  - Chest pain [Not Recovered/Not Resolved]
  - Pain [Not Recovered/Not Resolved]
  - Extrasystoles [Not Recovered/Not Resolved]
  - Off label use [Unknown]
  - Thrombosis [Unknown]
  - Tachycardia [Unknown]
  - Migraine [Not Recovered/Not Resolved]
  - Faecal volume increased [Not Recovered/Not Resolved]
  - Functional gastrointestinal disorder [Not Recovered/Not Resolved]
  - Factor V Leiden mutation [Not Recovered/Not Resolved]
  - Tendon disorder [Not Recovered/Not Resolved]
  - Physical deconditioning [Unknown]
  - Irritable bowel syndrome [Not Recovered/Not Resolved]
  - Arthralgia [Not Recovered/Not Resolved]
  - Product use in unapproved indication [Unknown]

NARRATIVE: CASE EVENT DATE: 2015
